FAERS Safety Report 6871172-4 (Version None)
Quarter: 2010Q3

REPORT INFORMATION
  Report Type: 
  Country: None (occurrence: None)
  Receive Date: 20100723
  Receipt Date: 20100712
  Transmission Date: 20110219
  Serious: Yes (Hospitalization, Disabling, Other)
  Sender: FDA-Public Use
  Company Number: US-PFIZER INC-2010023237

PATIENT
  Sex: Male

DRUGS (18)
  1. CHANTIX [Suspect]
     Indication: SMOKING CESSATION THERAPY
     Dosage: UNK
     Route: 048
     Dates: start: 20080201
  2. MICARDIS [Concomitant]
     Indication: MYOCARDIAL INFARCTION
     Dosage: UNK
     Dates: start: 20060101
  3. MICARDIS [Concomitant]
     Indication: HYPERTENSION
  4. ISOSORBIDE DINITRATE [Concomitant]
     Indication: MYOCARDIAL INFARCTION
     Dosage: UNK
     Dates: start: 20060101
  5. WARFARIN [Concomitant]
     Indication: MYOCARDIAL INFARCTION
     Dosage: UNK
     Dates: start: 20060101
  6. WARFARIN [Concomitant]
     Indication: COAGULOPATHY
  7. OMEPRAZOLE [Concomitant]
     Indication: MYOCARDIAL INFARCTION
     Dosage: UNK
     Dates: start: 20060101
  8. OMEPRAZOLE [Concomitant]
     Indication: GASTRIC DISORDER
  9. ACETYLSALICYLIC ACID [Concomitant]
     Indication: MYOCARDIAL INFARCTION
     Dosage: UNK
     Dates: start: 20060101
  10. ATENOLOL [Concomitant]
     Indication: MYOCARDIAL INFARCTION
     Dosage: UNK
     Dates: start: 20060101
  11. ATENOLOL [Concomitant]
     Indication: HYPERTENSION
  12. EZETIMIBE/SIMVASTATIN [Concomitant]
     Indication: MYOCARDIAL INFARCTION
     Dosage: UNK
     Dates: start: 20060101
  13. EZETIMIBE/SIMVASTATIN [Concomitant]
     Indication: BLOOD CHOLESTEROL
  14. TEMAZEPAM [Concomitant]
     Indication: MYOCARDIAL INFARCTION
     Dosage: UNK
     Dates: start: 20060101
  15. TEMAZEPAM [Concomitant]
     Indication: SLEEP DISORDER THERAPY
  16. PLAVIX [Concomitant]
     Indication: MYOCARDIAL INFARCTION
     Dosage: UNK
     Dates: start: 20060101
  17. NICOTINIC ACID [Concomitant]
     Indication: MYOCARDIAL INFARCTION
     Dosage: UNK
     Dates: start: 20060101
  18. HYDROCHLOROTHIAZIDE [Concomitant]
     Indication: HYPERTENSION
     Dosage: UNK
     Dates: start: 19810101

REACTIONS (4)
  - ANXIETY [None]
  - DEPRESSION [None]
  - OVERDOSE [None]
  - SUICIDE ATTEMPT [None]
